FAERS Safety Report 17722054 (Version 21)
Quarter: 2024Q4

REPORT INFORMATION
  Report Type: Spontaneous
  Country: CA (occurrence: CA)
  Receive Date: 20200429
  Receipt Date: 20241113
  Transmission Date: 20250115
  Serious: Yes (Other)
  Sender: CELLTRION
  Company Number: CA-CELLTRION INC.-2020CA020891

PATIENT

DRUGS (22)
  1. INFLECTRA [Suspect]
     Active Substance: INFLIXIMAB-DYYB
     Indication: Colitis ulcerative
     Dosage: 400 MG AT 0, 2, 6 WEEKS, THEN EVERY 8 WEEKS
     Route: 042
     Dates: start: 20200305, end: 20200323
  2. INFLECTRA [Suspect]
     Active Substance: INFLIXIMAB-DYYB
     Indication: Crohn^s disease
     Dosage: 400 MG AT 0, 2, 6 WEEKS,THEN EVERY 8 WEEKS
     Route: 042
     Dates: start: 20200323
  3. INFLECTRA [Suspect]
     Active Substance: INFLIXIMAB-DYYB
     Dosage: 10 MG/KG (800 MG FOR 1 DOSE, THEN 5 MG/KG EVERY 8 WEEKS)
     Route: 042
     Dates: start: 20200506, end: 20200506
  4. INFLECTRA [Suspect]
     Active Substance: INFLIXIMAB-DYYB
     Dosage: 5 MG/KG EVERY 8 WEEKS
     Route: 042
     Dates: start: 20200716
  5. INFLECTRA [Suspect]
     Active Substance: INFLIXIMAB-DYYB
     Dosage: 5 MG/KG EVERY 8 WEEKS
     Route: 042
     Dates: start: 20200910
  6. INFLECTRA [Suspect]
     Active Substance: INFLIXIMAB-DYYB
     Dosage: 5 MG/KG EVERY 8 WEEKS
     Route: 042
     Dates: start: 20201102
  7. INFLECTRA [Suspect]
     Active Substance: INFLIXIMAB-DYYB
     Dosage: 5 MG/KG EVERY 8 WEEKS
     Route: 042
     Dates: start: 20201228
  8. INFLECTRA [Suspect]
     Active Substance: INFLIXIMAB-DYYB
     Dosage: 5 MG/KG EVERY 8 WEEKS
     Route: 042
     Dates: start: 20210222, end: 20210222
  9. INFLECTRA [Suspect]
     Active Substance: INFLIXIMAB-DYYB
     Dosage: 5 MG/KG EVERY 8 WEEKS
     Route: 042
     Dates: start: 20210419
  10. INFLECTRA [Suspect]
     Active Substance: INFLIXIMAB-DYYB
     Dosage: 5 MG/KG EVERY 8 WEEKS
     Route: 042
     Dates: start: 20210614
  11. INFLECTRA [Suspect]
     Active Substance: INFLIXIMAB-DYYB
     Dosage: 5 MG/KG EVERY 8 WEEKS
     Route: 042
     Dates: start: 20210809
  12. INFLECTRA [Suspect]
     Active Substance: INFLIXIMAB-DYYB
     Dosage: 5 MG/KG EVERY 8 WEEKS
     Route: 042
     Dates: start: 20211004
  13. INFLECTRA [Suspect]
     Active Substance: INFLIXIMAB-DYYB
     Dosage: 5 MG/KG EVERY 8 WEEKS
     Route: 042
     Dates: start: 20211129
  14. INFLECTRA [Suspect]
     Active Substance: INFLIXIMAB-DYYB
     Dosage: 5 MG/KG EVERY 8 WEEKS
     Route: 042
     Dates: start: 20220124
  15. INFLECTRA [Suspect]
     Active Substance: INFLIXIMAB-DYYB
     Dosage: 5 MG/KG EVERY 8 WEEKS
     Route: 042
     Dates: start: 20220321
  16. INFLECTRA [Suspect]
     Active Substance: INFLIXIMAB-DYYB
     Dosage: 5 MG/KG EVERY 8 WEEKS
     Route: 042
     Dates: start: 20220516
  17. INFLECTRA [Suspect]
     Active Substance: INFLIXIMAB-DYYB
     Dosage: 5 MG/KG EVERY 8 WEEKS
     Route: 042
     Dates: start: 20220711
  18. INFLECTRA [Suspect]
     Active Substance: INFLIXIMAB-DYYB
     Dosage: 10 MG/KG (800 MG) ONE TIME DOSE, THEN 5 MG/KG EVERY 8 WEEKS
     Route: 042
     Dates: start: 20241101
  19. AZATHIOPRINE [Concomitant]
     Active Substance: AZATHIOPRINE
     Dosage: 1 DF, DOSAGE INFO UNK
     Route: 065
  20. IMODIUM [Concomitant]
     Active Substance: LOPERAMIDE HYDROCHLORIDE
     Dosage: 1 OD (ONCE DAILY)/EVERY MORNING
     Dates: start: 202004
  21. PREDNISONE [Concomitant]
     Active Substance: PREDNISONE
     Dosage: 40 MG, UNK
     Route: 065
  22. PREDNISONE [Concomitant]
     Active Substance: PREDNISONE
     Dosage: 20 MG, WILL TAPER OFF BY 5MG A WEEK
     Route: 065
     Dates: start: 20220623

REACTIONS (24)
  - Squamous cell carcinoma [Not Recovered/Not Resolved]
  - Haematochezia [Recovered/Resolved]
  - Body temperature increased [Unknown]
  - Blister [Unknown]
  - Blood pressure fluctuation [Not Recovered/Not Resolved]
  - C-reactive protein increased [Unknown]
  - Constipation [Unknown]
  - Dizziness [Unknown]
  - Diarrhoea [Recovered/Resolved]
  - Erythema [Unknown]
  - Fatigue [Unknown]
  - Faecal calprotectin increased [Unknown]
  - Feeling abnormal [Unknown]
  - Gait disturbance [Unknown]
  - Nausea [Unknown]
  - Pallor [Unknown]
  - Vomiting [Recovered/Resolved]
  - Blood pressure increased [Unknown]
  - Condition aggravated [Recovering/Resolving]
  - Arthralgia [Not Recovered/Not Resolved]
  - Abdominal distension [Recovering/Resolving]
  - Off label use [Unknown]
  - Product administration error [Unknown]
  - Intentional product use issue [Unknown]

NARRATIVE: CASE EVENT DATE: 20200101
